FAERS Safety Report 8837435 (Version 1)
Quarter: 2012Q4

REPORT INFORMATION
  Report Type: 
  Country: FR (occurrence: FR)
  Receive Date: 20121012
  Receipt Date: 20121012
  Transmission Date: 20130627
  Serious: Yes (Hospitalization)
  Sender: FDA-Public Use
  Company Number: FR-JNJFOC-20121002588

PATIENT
  Age: 74 None
  Sex: Male

DRUGS (7)
  1. ZYTIGA [Suspect]
     Route: 048
  2. ZYTIGA [Suspect]
     Indication: PRODUCT USED FOR UNKNOWN INDICATION
     Route: 048
     Dates: start: 201205, end: 20120610
  3. RAMIPRIL [Concomitant]
     Route: 048
     Dates: end: 20120610
  4. INNOHEP [Concomitant]
     Route: 058
  5. SOLUPRED [Concomitant]
     Route: 048
  6. ZOMETA [Concomitant]
     Route: 042
  7. MOPRAL [Concomitant]
     Indication: PRODUCT USED FOR UNKNOWN INDICATION
     Route: 048

REACTIONS (4)
  - Paraparesis [Recovered/Resolved]
  - Paraesthesia [Unknown]
  - Rhabdomyolysis [Unknown]
  - Renal failure acute [Unknown]
